FAERS Safety Report 4331713-8 (Version None)
Quarter: 2004Q2

REPORT INFORMATION
  Report Type: 
  Country: None (occurrence: None)
  Receive Date: 20040405
  Receipt Date: 20030408
  Transmission Date: 20050107
  Serious: No
  Sender: FDA-Public Use
  Company Number: US-GLAXOSMITHKLINE-A0403992A

PATIENT
  Sex: Female

DRUGS (2)
  1. FLOVENT [Suspect]
     Indication: ASTHMA
     Dosage: 110MCG PER DAY
     Route: 055
     Dates: start: 19990101
  2. SEREVENT [Suspect]
     Indication: ASTHMA
     Route: 055

REACTIONS (1)
  - WEIGHT INCREASED [None]
